FAERS Safety Report 6557028-5 (Version None)
Quarter: 2010Q1

REPORT INFORMATION
  Report Type: 
  Country: None (occurrence: None)
  Receive Date: 20100128
  Receipt Date: 20100121
  Transmission Date: 20100710
  Serious: Yes (Hospitalization)
  Sender: FDA-Public Use
  Company Number: US-ABBOTT-10P-163-0620749-00

PATIENT
  Sex: Female
  Weight: 43.584 kg

DRUGS (3)
  1. HUMIRA [Suspect]
     Indication: CROHN'S DISEASE
     Dates: start: 20091201
  2. PENTAZA [Concomitant]
     Indication: CROHN'S DISEASE
  3. PREDNISONE [Concomitant]
     Indication: CROHN'S DISEASE

REACTIONS (5)
  - CONVULSION [None]
  - MIGRAINE [None]
  - TREMOR [None]
  - VISION BLURRED [None]
  - VISUAL IMPAIRMENT [None]
